FAERS Safety Report 23173757 (Version 1)
Quarter: 2023Q4

REPORT INFORMATION
  Report Type: Spontaneous
  Country: DE (occurrence: DE)
  Receive Date: 20231111
  Receipt Date: 20231111
  Transmission Date: 20240110
  Serious: Yes (Other)
  Sender: FDA-Public Use
  Company Number: None

PATIENT
  Age: 8 Decade

DRUGS (32)
  1. BORTEZOMIB [Suspect]
     Active Substance: BORTEZOMIB
     Indication: Plasma cell myeloma
     Dosage: 1.3 MG/M2, D1, BRIDGING THERAPY, SECOND CYCLE, AS A PART OF SHORTENED PROTOCOL POM-PAD-DARA
     Dates: start: 20230612
  2. BORTEZOMIB [Suspect]
     Active Substance: BORTEZOMIB
     Dosage: 1.3 MG/M2, D4, BRIDGING THERAPY
     Dates: start: 20230520
  3. BORTEZOMIB [Suspect]
     Active Substance: BORTEZOMIB
     Dosage: 1.3 MG/M2, D1, BRIDGING THERAPY
     Dates: start: 20230516
  4. BORTEZOMIB [Suspect]
     Active Substance: BORTEZOMIB
     Dosage: 1.3 MG/M2, D1, BRIDGING THERAPY, THIRD CYCLE, AS A PART OF SHORTENED PROTOCOL POM-PAD-DARA
     Dates: start: 20230704
  5. POMALIDOMIDE [Suspect]
     Active Substance: POMALIDOMIDE
     Indication: Plasma cell myeloma
     Dosage: 2 MG, D1-3, BRIDGING THERAPY, THIRD CYCLE, AS A PART OF SHORTENED PROTOCOL POM-PAD-DARA
     Dates: start: 20230704, end: 20230707
  6. POMALIDOMIDE [Suspect]
     Active Substance: POMALIDOMIDE
     Dosage: 4 MG, D1-14, BRIDGING THERAPY
     Dates: start: 20230516, end: 20230530
  7. POMALIDOMIDE [Suspect]
     Active Substance: POMALIDOMIDE
     Dosage: 4 MG, D1-3, BRIDGING THERAPY, SECOND CYCLE, AS A PART OF SHORTENED PROTOCOL POM-PAD-DARA
     Dates: start: 20230512, end: 20230615
  8. DARATUMUMAB [Suspect]
     Active Substance: DARATUMUMAB
     Indication: Plasma cell myeloma
     Dosage: 16 MG/M2, D0, BRIDGING THERAPY
     Dates: start: 20230516
  9. DARATUMUMAB [Suspect]
     Active Substance: DARATUMUMAB
     Dosage: 16 MG/M2, D0, BRIDGING THERAPY, SECOND CYCLE, AS A PART OF SHORTENED PROTOCOL POM-PAD-DARA
     Dates: start: 20230612
  10. DARATUMUMAB [Suspect]
     Active Substance: DARATUMUMAB
     Dosage: 16 MG/M2, D0, BRIDGING THERAPY, THIRD CYCLE, AS A PART OF SHORTENED PROTOCOL POM-PAD-DARA
     Dates: start: 20230704
  11. DARATUMUMAB [Suspect]
     Active Substance: DARATUMUMAB
     Dosage: 16 MG/M2, D3, BRIDGING THERAPY, THIRD CYCLE, AS A PART OF SHORTENED PROTOCOL POM-PAD-DARA
     Dates: start: 20230707
  12. DARATUMUMAB [Suspect]
     Active Substance: DARATUMUMAB
     Dosage: 16 MG/M2, D5, BRIDGING THERAPY
     Dates: start: 20230521
  13. DARATUMUMAB [Suspect]
     Active Substance: DARATUMUMAB
     Dosage: 16 MG/M2, D3, BRIDGING THERAPY, SECOND CYCLE, AS A PART OF SHORTENED PROTOCOL POM-PAD-DARA
     Dates: start: 20230615
  14. DEXAMETHASONE [Suspect]
     Active Substance: DEXAMETHASONE
     Indication: Plasma cell myeloma
     Dosage: 20 MG, D0, BRIDGING THERAPY
     Dates: start: 20230516
  15. DEXAMETHASONE [Suspect]
     Active Substance: DEXAMETHASONE
     Dosage: 20 MG, D0, BRIDGING THERAPY, SECOND CYCLE, AS A PART OF SHORTENED PROTOCOL POM-PAD-DARA
     Dates: start: 20230612
  16. DEXAMETHASONE [Suspect]
     Active Substance: DEXAMETHASONE
     Dosage: 20 MG, D1, BRIDGING THERAPY, SECOND CYCLE, AS A PART OF SHORTENED PROTOCOL POM-PAD-DARA
     Dates: start: 20230612
  17. DEXAMETHASONE [Suspect]
     Active Substance: DEXAMETHASONE
     Dosage: 20 MG, D4, BRIDGING THERAPY
     Dates: start: 20230520
  18. DEXAMETHASONE [Suspect]
     Active Substance: DEXAMETHASONE
     Dosage: 20 MG, D1, BRIDGING THERAPY, THIRD CYCLE, AS A PART OF SHORTENED PROTOCOL POM-PAD-DARA
     Dates: start: 20230705
  19. DEXAMETHASONE [Suspect]
     Active Substance: DEXAMETHASONE
     Dosage: 20 MG, D5, BRIDGING THERAPY
     Dates: start: 20230521
  20. DEXAMETHASONE [Suspect]
     Active Substance: DEXAMETHASONE
     Dosage: 20 MG, D2, BRIDGING THERAPY, THIRD CYCLE, AS A PART OF SHORTENED PROTOCOL POM-PAD-DARA
     Dates: start: 20230706
  21. DEXAMETHASONE [Suspect]
     Active Substance: DEXAMETHASONE
     Dosage: 20 MG, D0, BRIDGING THERAPY, THIRD CYCLE, AS A PART OF SHORTENED PROTOCOL POM-PAD-DARA
     Dates: start: 20230704
  22. DEXAMETHASONE [Suspect]
     Active Substance: DEXAMETHASONE
     Dosage: 20 MG, D1, BRIDGING THERAPY
     Dates: start: 20230517
  23. DEXAMETHASONE [Suspect]
     Active Substance: DEXAMETHASONE
     Dosage: 20 MG, D2, BRIDGING THERAPY, SECOND CYCLE, AS A PART OF SHORTENED PROTOCOL POM-PAD-DARA
     Dates: start: 20230614
  24. DEXAMETHASONE [Suspect]
     Active Substance: DEXAMETHASONE
     Dosage: 20 MG, D2, BRIDGING THERAPY
     Dates: start: 20230518
  25. DOXORUBICIN [Suspect]
     Active Substance: DOXORUBICIN
     Indication: Plasma cell myeloma
     Dosage: 9 MG/M2, D2, BRIDGING THERAPY, SECOND CYCLE, AS A PART OF SHORTENED PROTOCOL POM-PAD-DARA
     Dates: start: 20230614
  26. DOXORUBICIN [Suspect]
     Active Substance: DOXORUBICIN
     Dosage: 9 MG/M2, D2, BRIDGING THERAPY, THIRD CYCLE, AS A PART OF SHORTENED PROTOCOL POM-PAD-DARA
     Dates: start: 20230706
  27. DOXORUBICIN [Suspect]
     Active Substance: DOXORUBICIN
     Dosage: 9 MG/M2, D3, BRIDGING THERAPY, SECOND CYCLE, AS A PART OF SHORTENED PROTOCOL POM-PAD-DARA
     Dates: start: 20230615
  28. DOXORUBICIN [Suspect]
     Active Substance: DOXORUBICIN
     Dosage: 9 MG/M2, D1, BRIDGING THERAPY, THIRD CYCLE, AS A PART OF SHORTENED PROTOCOL POM-PAD-DARA
     Dates: start: 20230704
  29. DOXORUBICIN [Suspect]
     Active Substance: DOXORUBICIN
     Dosage: 9 MG/M2, D1, BRIDGING THERAPY, SECOND CYCLE, AS A PART OF SHORTENED PROTOCOL POM-PAD-DARA
     Dates: start: 20230612
  30. DOXORUBICIN [Suspect]
     Active Substance: DOXORUBICIN
     Dosage: 9 MG/M2, D3, BRIDGING THERAPY, THIRD CYCLE, AS A PART OF SHORTENED PROTOCOL POM-PAD-DARA
     Dates: start: 20230707
  31. DOXORUBICIN [Suspect]
     Active Substance: DOXORUBICIN
     Dosage: 6 MG/M2, D1-4, BRIDGING THERAPY, FOURTH CYCLE, AS A PART OF SHORTENED PROTOCOL POM-PAD-DARA
     Dates: start: 20230805, end: 20230808
  32. DOXORUBICIN [Suspect]
     Active Substance: DOXORUBICIN
     Dosage: 9 MG/M2, D1-4, BRIDGING THERAPY
     Dates: start: 20230516, end: 20230520

REACTIONS (1)
  - Plasma cell myeloma [Unknown]

NARRATIVE: CASE EVENT DATE: 20230101
